FAERS Safety Report 11633845 (Version 1)
Quarter: 2015Q4

REPORT INFORMATION
  Report Type: Spontaneous
  Country: FR (occurrence: FR)
  Receive Date: 20151015
  Receipt Date: 20151015
  Transmission Date: 20160304
  Serious: Yes (Other)
  Sender: FDA-Public Use
  Company Number: FR-TEVA-599965ISR

PATIENT
  Age: 7 Year
  Sex: Male
  Weight: 21.2 kg

DRUGS (17)
  1. VINCRISTINE TEVA [Suspect]
     Active Substance: VINCRISTINE
     Dosage: INDUCTION PHASE 1.5 MG/M2 ON 17-JUL-2015, 24-JUL-2015, 31-JUL-2015 AND 07-AUG-2015
     Route: 041
     Dates: start: 20150717, end: 20150807
  2. PURINETHOL [Suspect]
     Active Substance: MERCAPTOPURINE
     Route: 048
     Dates: start: 20150822
  3. ARACYTINE [Suspect]
     Active Substance: CYTARABINE
     Route: 037
     Dates: start: 20150721, end: 20150915
  4. METHOTREXATE [Suspect]
     Active Substance: METHOTREXATE
     Route: 037
     Dates: start: 20150721, end: 20150915
  5. SOLUPRED [Suspect]
     Active Substance: PREDNISOLONE
     Dosage: PRE-PHASE DAY 3
     Route: 048
     Dates: start: 20150712, end: 20150712
  6. SOLUPRED [Suspect]
     Active Substance: PREDNISOLONE
     Dosage: PRE-PHASE DAY 5 TO DAY 7
     Route: 048
     Dates: start: 20150714, end: 20150716
  7. DEXAMETHASONE MYLAN [Suspect]
     Active Substance: DEXAMETHASONE
     Dosage: 1 MILLIGRAM DAILY; DECREASED DOSE FROM 15-AUG-2015
     Route: 037
     Dates: start: 20150721, end: 20150915
  8. KIDROLASE [Suspect]
     Active Substance: ASPARAGINASE
     Route: 041
     Dates: start: 20150721, end: 20150813
  9. ENDOXAN [Suspect]
     Active Substance: CYCLOPHOSPHAMIDE
     Dosage: CONSOLIDATION PHASE 1G/M2 ON 22-AUG-2015 AND ON 26-SEP-2015
     Route: 041
     Dates: start: 20150822, end: 20150926
  10. UROMITEXAN [Suspect]
     Active Substance: MESNA
     Dosage: CONSOLIDATION PHASE 350 MG/M2 ON 22-AUG-2015 AND ON 26-SEP-2015
     Route: 040
     Dates: start: 20150822, end: 20150926
  11. DEXAMETHASONE MYLAN [Suspect]
     Active Substance: DEXAMETHASONE
     Dosage: 8 MILLIGRAM DAILY; 10 MG/M2/DAY
     Route: 048
     Dates: start: 20150717, end: 20150813
  12. SOLUPRED [Suspect]
     Active Substance: PREDNISOLONE
     Dosage: PRE-PHASE DAY 2
     Route: 048
     Dates: start: 20150711, end: 20150711
  13. SOLUPRED [Suspect]
     Active Substance: PREDNISOLONE
     Dosage: PRE-PHASE DAY 4
     Route: 048
     Dates: start: 20150713, end: 20150713
  14. ARACYTINE [Suspect]
     Active Substance: CYTARABINE
     Route: 040
     Dates: start: 20150824, end: 20150925
  15. HYDROCORTISONE. [Concomitant]
     Active Substance: HYDROCORTISONE
     Route: 037
     Dates: start: 20150721, end: 20150915
  16. SOLUPRED [Suspect]
     Active Substance: PREDNISOLONE
     Dosage: PRE-PHASE DAY 1 -
     Route: 048
     Dates: start: 20150710, end: 20150710
  17. DAUNORUBICINE [Suspect]
     Active Substance: DAUNORUBICIN
     Dosage: INDUCTION PHASE 30 MG/M2 ON 17-JUL-2015, 24-JUL-2015, 31-JUL-2015 AND 07-AUG-2015
     Route: 041
     Dates: start: 20150717, end: 20150731

REACTIONS (2)
  - Tachycardia [Recovered/Resolved]
  - Ejection fraction decreased [Not Recovered/Not Resolved]

NARRATIVE: CASE EVENT DATE: 20150903
